FAERS Safety Report 7055350-X (Version None)
Quarter: 2010Q4

REPORT INFORMATION
  Report Type: 
  Country: None (occurrence: None)
  Receive Date: 20101019
  Receipt Date: 20101019
  Transmission Date: 20110411
  Serious: Yes (Hospitalization)
  Sender: FDA-Public Use
  Company Number: None

PATIENT
  Age: 52 Year
  Sex: Male
  Weight: 115.6672 kg

DRUGS (27)
  1. PEMETREXED [Suspect]
     Indication: LUNG NEOPLASM MALIGNANT
     Dosage: 1055MG Q 21 D IV DRIP (5 CYCLES)
     Route: 041
     Dates: start: 20100707, end: 20101004
  2. CISPLATIN [Suspect]
     Indication: LUNG NEOPLASM MALIGNANT
     Dosage: 158 MG Q 21 D IV DRIP (5 CYCLES)
     Route: 041
     Dates: start: 20100707, end: 20101004
  3. ACCU-CHEK AVIVA -GLUCOSE- TEST STRIP [Concomitant]
  4. ALBUTEROL/IPRATROP [Concomitant]
  5. ALBUTEROL SO4 [Concomitant]
  6. APREPITANT [Concomitant]
  7. DIAZEPAM [Concomitant]
  8. DOCUSATE NA [Concomitant]
  9. FOLIC ACID [Concomitant]
  10. FORMOTEROL FUMARATE [Concomitant]
  11. HYDROCODONE/ACETAMINPHEN [Concomitant]
  12. METFORMIN HCL [Concomitant]
  13. METOPROLOL TARTRATE [Concomitant]
  14. MOMETASONE FUROATE [Concomitant]
  15. MULTI-VITAMIN [Concomitant]
  16. OMEPRAZOLE [Concomitant]
  17. SIMVASTATIN [Concomitant]
  18. TRAZODONE HCL [Concomitant]
  19. VARENICLINE [Concomitant]
  20. ALBUTEROL [Concomitant]
  21. APREPITANT [Concomitant]
  22. DIAZEPAM [Concomitant]
  23. DOCUSATE NA [Concomitant]
  24. FOLIC ACID [Concomitant]
  25. FORMETEROL FUMARATE [Concomitant]
  26. HYDROCODONE/ACEAMINOPHEN [Concomitant]
  27. ACETAMINOPHEN [Concomitant]

REACTIONS (10)
  - ABDOMINAL PAIN [None]
  - ASTHENIA [None]
  - BACK PAIN [None]
  - CHILLS [None]
  - FATIGUE [None]
  - FEBRILE NEUTROPENIA [None]
  - FLANK PAIN [None]
  - MALAISE [None]
  - SEPSIS [None]
  - URINARY HESITATION [None]
